FAERS Safety Report 7810937-9 (Version None)
Quarter: 2011Q4

REPORT INFORMATION
  Report Type: 
  Country: None (occurrence: None)
  Receive Date: 20111013
  Receipt Date: 20111012
  Transmission Date: 20120403
  Serious: No
  Sender: FDA-Public Use
  Company Number: US-PFIZER INC-2011243849

PATIENT
  Sex: Female

DRUGS (3)
  1. ADVIL PM [Suspect]
     Indication: PAIN
  2. TRAMADOL [Concomitant]
     Indication: BACK PAIN
     Dosage: UNK
  3. ADVIL PM [Suspect]
     Indication: INSOMNIA
     Dosage: TWO CAPLETS DAILY
     Dates: start: 20111011, end: 20111011

REACTIONS (3)
  - DRUG INEFFECTIVE [None]
  - MIDDLE INSOMNIA [None]
  - HYPOAESTHESIA [None]
